FAERS Safety Report 9554185 (Version 1)
Quarter: 2013Q3

REPORT INFORMATION
  Report Type: Spontaneous
  Country: US (occurrence: None)
  Receive Date: 20130802
  Receipt Date: 20130802
  Transmission Date: 20140515
  Serious: Yes (Other)
  Sender: FDA-Public Use
  Company Number: 1212USA007380

PATIENT
  Sex: Male

DRUGS (1)
  1. INTRONA [Suspect]
     Indication: HEPATITIS C
     Dates: start: 19940107, end: 19941209

REACTIONS (2)
  - Hypothyroidism [None]
  - Hepatitis C [None]
